FAERS Safety Report 17762394 (Version 1)
Quarter: 2020Q2

REPORT INFORMATION
  Report Type: Report from Study
  Country: EG (occurrence: EG)
  Receive Date: 20200508
  Receipt Date: 20200508
  Transmission Date: 20200714
  Serious: Yes (Death, Hospitalization)
  Sender: FDA-Public Use
  Company Number: NVSC2020EG125124

PATIENT
  Age: 55 Year
  Sex: Male

DRUGS (3)
  1. PROCORALAN [Concomitant]
     Active Substance: IVABRADINE
     Indication: PRODUCT USED FOR UNKNOWN INDICATION
     Dosage: 0.5 DF, BID
     Route: 065
  2. LASIX [Concomitant]
     Active Substance: FUROSEMIDE
     Indication: PRODUCT USED FOR UNKNOWN INDICATION
     Dosage: 0.5 MG, QD
     Route: 065
  3. ENTRESTO [Suspect]
     Active Substance: SACUBITRIL\VALSARTAN
     Indication: CARDIAC FAILURE
     Dosage: 0.5 DF, BID
     Route: 048
     Dates: start: 2019

REACTIONS (6)
  - Cardiac arrest [Fatal]
  - Urine output decreased [Fatal]
  - Wrong technique in product usage process [Fatal]
  - Oedema [Fatal]
  - Poor peripheral circulation [Fatal]
  - Hypotension [Fatal]

NARRATIVE: CASE EVENT DATE: 202004
